FAERS Safety Report 24606574 (Version 1)
Quarter: 2024Q4

REPORT INFORMATION
  Report Type: Spontaneous
  Country: US (occurrence: US)
  Receive Date: 20241112
  Receipt Date: 20241112
  Transmission Date: 20250115
  Serious: No
  Sender: Kanchan Healthcare
  Company Number: US-Kanchan Healthcare INC-2164824

PATIENT
  Age: 70 Year
  Sex: Female

DRUGS (5)
  1. ETHAMBUTOL HYDROCHLORIDE [Suspect]
     Active Substance: ETHAMBUTOL HYDROCHLORIDE
     Indication: Mycobacterium avium complex infection
     Dates: start: 2023
  2. AZITHROMYCIN ANHYDROUS [Suspect]
     Active Substance: AZITHROMYCIN ANHYDROUS
  3. LEVAQUIN [Concomitant]
     Active Substance: LEVOFLOXACIN
  4. CLOFAZIMINE [Concomitant]
     Active Substance: CLOFAZIMINE
  5. RIFAMPIN [Suspect]
     Active Substance: RIFAMPIN

REACTIONS (5)
  - Productive cough [Unknown]
  - Product use in unapproved indication [Unknown]
  - Pulmonary mass [Unknown]
  - Computerised tomogram thorax abnormal [Unknown]
  - Condition aggravated [Unknown]
